FAERS Safety Report 7800609-9 (Version None)
Quarter: 2011Q4

REPORT INFORMATION
  Report Type: 
  Country: None (occurrence: None)
  Receive Date: 20111006
  Receipt Date: 20111003
  Transmission Date: 20120403
  Serious: Yes (Hospitalization, Other)
  Sender: FDA-Public Use
  Company Number: GB-ABBOTT-11P-167-0860600-00

PATIENT
  Age: 26 Year
  Sex: Female

DRUGS (3)
  1. PAIN KILLERS NOS [Concomitant]
     Indication: PAIN
  2. IMODIUM [Concomitant]
     Indication: DIARRHOEA
  3. HUMIRA [Suspect]
     Indication: CROHN'S DISEASE
     Dates: start: 20100401

REACTIONS (11)
  - DERMATITIS [None]
  - CROHN'S DISEASE [None]
  - OESOPHAGITIS [None]
  - DIARRHOEA [None]
  - ULCER [None]
  - ECZEMA [None]
  - FAECAL INCONTINENCE [None]
  - FISTULA [None]
  - ANORECTAL DISORDER [None]
  - HYPERSENSITIVITY [None]
  - PAIN [None]
